FAERS Safety Report 21566898 (Version 1)
Quarter: 2022Q4

REPORT INFORMATION
  Report Type: Spontaneous
  Country: US (occurrence: US)
  Receive Date: 20221108
  Receipt Date: 20221108
  Transmission Date: 20230113
  Serious: Yes (Life-Threatening, Hospitalization, Other)
  Sender: FDA-Public Use
  Company Number: US-JUBILANT CADISTA PHARMACEUTICALS-2022JUB00409

PATIENT
  Age: 54 Year
  Sex: Female

DRUGS (2)
  1. LEVETIRACETAM [Suspect]
     Active Substance: LEVETIRACETAM
     Dosage: 60 DOSAGE FORMS (45000 MG) ONCE TOTAL
     Route: 048
  2. AMITRIPTYLINE HYDROCHLORIDE [Suspect]
     Active Substance: AMITRIPTYLINE HYDROCHLORIDE
     Dosage: 25 DOSAGE FORMS, 2500 MG) ONCE TOTAL
     Route: 048

REACTIONS (3)
  - Unresponsive to stimuli [Unknown]
  - Depressed level of consciousness [Unknown]
  - Intentional overdose [Unknown]
